FAERS Safety Report 7747346-7 (Version None)
Quarter: 2011Q3

REPORT INFORMATION
  Report Type: 
  Country: None (occurrence: None)
  Receive Date: 20110913
  Receipt Date: 20110902
  Transmission Date: 20111222
  Serious: Yes (Hospitalization)
  Sender: FDA-Public Use
  Company Number: US-GLAXOSMITHKLINE-A0685361A

PATIENT
  Age: 65 Year
  Sex: Male
  Weight: 77.3 kg

DRUGS (5)
  1. FOLIC ACID [Concomitant]
  2. METFORMIN HCL [Concomitant]
  3. ASPIRIN [Concomitant]
  4. AVANDAMET [Suspect]
     Indication: DIABETES MELLITUS
     Route: 048
     Dates: start: 20020101
  5. AVANDIA [Suspect]
     Indication: TYPE 2 DIABETES MELLITUS
     Dosage: 4MG TWICE PER DAY
     Route: 048
     Dates: end: 20070101

REACTIONS (5)
  - MITRAL VALVE REPAIR [None]
  - EYE HAEMORRHAGE [None]
  - MYOCARDIAL INFARCTION [None]
  - CORONARY ARTERY DISEASE [None]
  - CARDIAC DISORDER [None]
